FAERS Safety Report 7311235-2 (Version None)
Quarter: 2011Q1

REPORT INFORMATION
  Report Type: 
  Country: None (occurrence: None)
  Receive Date: 20110224
  Receipt Date: 20110215
  Transmission Date: 20110831
  Serious: Yes (Other)
  Sender: FDA-Public Use
  Company Number: DE-ROCHE-761419

PATIENT

DRUGS (2)
  1. CELLCEPT [Suspect]
     Route: 065
  2. MABTHERA [Suspect]
     Route: 065

REACTIONS (1)
  - LEUKOENCEPHALOPATHY [None]
